FAERS Safety Report 9106818 (Version 1)
Quarter: 2013Q1

REPORT INFORMATION
  Report Type: Spontaneous
  Country: US (occurrence: US)
  Receive Date: 20130204
  Receipt Date: 20130204
  Transmission Date: 20140127
  Serious: No
  Sender: FDA-Public Use
  Company Number: US-TARO-2012P1060911

PATIENT
  Age: 55 Year
  Sex: Male
  Weight: 68.04 kg

DRUGS (1)
  1. BETAMETHASONE VALERATE [Suspect]
     Route: 061
     Dates: start: 20121001, end: 20121008

REACTIONS (2)
  - Drug ineffective [Not Recovered/Not Resolved]
  - Dermatitis contact [Recovering/Resolving]
